FAERS Safety Report 10461797 (Version 1)
Quarter: 2014Q3

REPORT INFORMATION
  Report Type: Spontaneous
  Country: IN (occurrence: IN)
  Receive Date: 20140918
  Receipt Date: 20140918
  Transmission Date: 20150326
  Serious: Yes (Death)
  Sender: FDA-Public Use
  Company Number: IN-ASTELLAS-2014JP020795

PATIENT
  Age: 48 Year
  Sex: Male

DRUGS (1)
  1. MICAFUNGIN [Suspect]
     Active Substance: MICAFUNGIN
     Indication: SEPSIS
     Route: 065
     Dates: start: 20140908

REACTIONS (1)
  - Death [Fatal]

NARRATIVE: CASE EVENT DATE: 20140910
